FAERS Safety Report 25023718 (Version 3)
Quarter: 2025Q3

REPORT INFORMATION
  Report Type: Spontaneous
  Country: US (occurrence: US)
  Receive Date: 20250228
  Receipt Date: 20250703
  Transmission Date: 20251020
  Serious: Yes (Other)
  Sender: CHATTEM
  Company Number: US-OPELLA-2025OHG005171

PATIENT
  Sex: Female

DRUGS (2)
  1. GOLD BOND ORIGINAL STRENGTH [Suspect]
     Active Substance: MENTHOL
     Indication: Product used for unknown indication
     Route: 065
  2. METFORMIN [Concomitant]
     Active Substance: METFORMIN HYDROCHLORIDE
     Indication: Product used for unknown indication
     Dosage: STRENGTH: 500 MG/5 ML
     Route: 065

REACTIONS (2)
  - Peritoneal mesothelioma malignant [Unknown]
  - Exposure to chemical pollution [Unknown]
